FAERS Safety Report 7976755-6 (Version None)
Quarter: 2011Q4

REPORT INFORMATION
  Report Type: 
  Country: None (occurrence: None)
  Receive Date: 20111213
  Receipt Date: 20111108
  Transmission Date: 20120403
  Serious: No
  Sender: FDA-Public Use
  Company Number: US-AMGEN-USASP2011058427

PATIENT
  Age: 46 Year
  Sex: Female

DRUGS (2)
  1. ENBREL [Suspect]
     Indication: PSORIATIC ARTHROPATHY
     Dosage: UNK
     Dates: start: 20050701
  2. METHOTREXATE [Concomitant]
     Dosage: UNK
     Dates: end: 20100101

REACTIONS (2)
  - HEPATIC ENZYME INCREASED [None]
  - PSORIATIC ARTHROPATHY [None]
